FAERS Safety Report 26011275 (Version 1)
Quarter: 2025Q4

REPORT INFORMATION
  Report Type: Spontaneous
  Country: US (occurrence: None)
  Receive Date: 20251106
  Receipt Date: 20251106
  Transmission Date: 20260118
  Serious: No
  Sender: FDA-CTU
  Company Number: None

PATIENT
  Age: 67 Year
  Sex: Female

DRUGS (1)
  1. OJJAARA [Suspect]
     Active Substance: MOMELOTINIB DIHYDROCHLORIDE MONOHYDRATE
     Indication: Myelofibrosis
     Dosage: FREQUENCY : DAILY;?
     Route: 048

REACTIONS (10)
  - Drug intolerance [None]
  - Therapy cessation [None]
  - Gastrooesophageal reflux disease [None]
  - Fatigue [None]
  - Dizziness [None]
  - Dyspnoea [None]
  - Pyrexia [None]
  - Blood pressure decreased [None]
  - Generalised oedema [None]
  - Herpes zoster [None]

NARRATIVE: CASE EVENT DATE: 20250701
